FAERS Safety Report 7594717-8 (Version None)
Quarter: 2011Q3

REPORT INFORMATION
  Report Type: 
  Country: None (occurrence: None)
  Receive Date: 20110707
  Receipt Date: 20110630
  Transmission Date: 20111222
  Serious: Yes (Hospitalization)
  Sender: FDA-Public Use
  Company Number: JP-JNJFOC-20110609139

PATIENT
  Age: 60 Year
  Sex: Male

DRUGS (3)
  1. FLUDECASIN [Concomitant]
     Route: 030
  2. CONTOMIN [Concomitant]
     Route: 048
  3. INVEGA [Suspect]
     Indication: PRODUCT USED FOR UNKNOWN INDICATION
     Route: 048
     Dates: start: 20110414, end: 20110611

REACTIONS (1)
  - CEREBRAL HAEMORRHAGE [None]
